FAERS Safety Report 24217839 (Version 2)
Quarter: 2024Q3

REPORT INFORMATION
  Report Type: Report from Study
  Country: CA (occurrence: CA)
  Receive Date: 20240816
  Receipt Date: 20240925
  Transmission Date: 20241017
  Serious: Yes (Hospitalization, Other)
  Sender: AMGEN
  Company Number: CA-Vifor (International) Inc.-VIT-2024-07087

PATIENT
  Age: 59 Year
  Sex: Female

DRUGS (1)
  1. AVACOPAN [Suspect]
     Active Substance: AVACOPAN
     Indication: Anti-neutrophil cytoplasmic antibody positive vasculitis
     Dosage: TAKE 3 CAPSULES ORALLY TWICE DAILY WITH FOOD
     Route: 048
     Dates: start: 20240522, end: 20240804

REACTIONS (4)
  - Urticaria [Unknown]
  - Chest pain [Unknown]
  - Rash pruritic [Unknown]
  - Diarrhoea [Unknown]

NARRATIVE: CASE EVENT DATE: 20240602
